FAERS Safety Report 8042888-1 (Version None)
Quarter: 2012Q1

REPORT INFORMATION
  Report Type: 
  Country: None (occurrence: None)
  Receive Date: 20120112
  Receipt Date: 20120105
  Transmission Date: 20120608
  Serious: Yes (Hospitalization)
  Sender: FDA-Public Use
  Company Number: JP-EISAI INC-E2090-01939-SPO-JP

PATIENT
  Age: 19 Year
  Sex: Female

DRUGS (4)
  1. LOXONIN [Concomitant]
     Dates: end: 20111215
  2. MEIACT [Concomitant]
     Route: 048
     Dates: end: 20111215
  3. TRANEXAMIC ACID [Concomitant]
     Dates: end: 20111215
  4. ZONISAMIDE [Suspect]
     Indication: EPILEPSY
     Route: 048
     Dates: start: 20111115, end: 20111215

REACTIONS (2)
  - HEPATIC FUNCTION ABNORMAL [None]
  - DRUG ERUPTION [None]
